FAERS Safety Report 6091220-1 (Version None)
Quarter: 2009Q1

REPORT INFORMATION
  Report Type: 
  Country: None (occurrence: None)
  Receive Date: 20090220
  Receipt Date: 20090220
  Transmission Date: 20090719
  Serious: Yes (Hospitalization, Other)
  Sender: FDA-Public Use
  Company Number: None

PATIENT
  Age: 29 Year
  Sex: Male
  Weight: 6 kg

DRUGS (8)
  1. ABILIFY [Suspect]
     Indication: STARVATION
     Dosage: 20MG
     Dates: start: 20040101, end: 20090101
  2. GEODON [Suspect]
     Dosage: 180 MG
     Dates: start: 20040125, end: 20090201
  3. . [Concomitant]
  4. RISPERDAL [Concomitant]
  5. HALDOL [Concomitant]
  6. ABILIFY [Concomitant]
  7. ZYPREXA [Concomitant]
  8. CRAP [Concomitant]

REACTIONS (7)
  - DIZZINESS [None]
  - FATIGUE [None]
  - LOSS OF CONSCIOUSNESS [None]
  - MENTAL DISORDER [None]
  - RASH [None]
  - VOMITING [None]
  - WEIGHT INCREASED [None]
